FAERS Safety Report 6384270-9 (Version None)
Quarter: 2009Q4

REPORT INFORMATION
  Report Type: 
  Country: None (occurrence: None)
  Receive Date: 20091001
  Receipt Date: 20090921
  Transmission Date: 20100525
  Serious: No
  Sender: FDA-Public Use
  Company Number: GB-MERCK-0807GBR00100M

PATIENT
  Age: 27 Year
  Sex: Female

DRUGS (4)
  1. SINGULAIR [Suspect]
     Indication: ASTHMA
     Route: 048
     Dates: end: 20080701
  2. PREDNISOLONE [Concomitant]
     Route: 065
  3. BUDESONIDE AND FORMOTEROL FUMARATE [Concomitant]
     Route: 065
  4. ALBUTEROL SULFATE [Concomitant]
     Route: 065

REACTIONS (3)
  - DRUG EXPOSURE DURING PREGNANCY [None]
  - HAEMORRHAGE [None]
  - PRE-ECLAMPSIA [None]
